FAERS Safety Report 7996237-5 (Version None)
Quarter: 2011Q4

REPORT INFORMATION
  Report Type: 
  Country: None (occurrence: None)
  Receive Date: 20111220
  Receipt Date: 20111213
  Transmission Date: 20120403
  Serious: Yes (Death)
  Sender: FDA-Public Use
  Company Number: IT-CELGENEUS-083-50794-11121669

PATIENT
  Sex: Male

DRUGS (5)
  1. MEPRAL [Concomitant]
     Route: 048
  2. VIDAZA [Suspect]
     Route: 058
     Dates: start: 20101206, end: 20101215
  3. PREDNISONE TAB [Concomitant]
     Route: 048
  4. ENOXAPARIN SODIUM [Concomitant]
     Indication: ATRIAL FIBRILLATION
     Route: 058
     Dates: start: 20101101
  5. LANOXIN [Concomitant]
     Indication: ATRIAL FIBRILLATION
     Route: 048
     Dates: start: 20101101

REACTIONS (1)
  - PNEUMONITIS [None]
